FAERS Safety Report 15721104 (Version 1)
Quarter: 2018Q4

REPORT INFORMATION
  Report Type: Spontaneous
  Country: GB (occurrence: GB)
  Receive Date: 20181214
  Receipt Date: 20181214
  Transmission Date: 20190205
  Serious: Yes (Other)
  Sender: FDA-Public Use
  Company Number: GB-TEVA-2018-GB-985717

PATIENT
  Age: 36 Year
  Sex: Female

DRUGS (1)
  1. DICLOFENAC SODIUM. [Suspect]
     Active Substance: DICLOFENAC SODIUM
     Route: 065
     Dates: start: 20181112

REACTIONS (3)
  - Hypersensitivity [Recovered/Resolved]
  - Rash pruritic [Unknown]
  - Swelling face [Unknown]

NARRATIVE: CASE EVENT DATE: 20181112
